FAERS Safety Report 19685581 (Version 1)
Quarter: 2021Q3

REPORT INFORMATION
  Report Type: Spontaneous
  Country: FR (occurrence: FR)
  Receive Date: 20210811
  Receipt Date: 20210811
  Transmission Date: 20211014
  Serious: Yes (Hospitalization, Other)
  Sender: FDA-Public Use
  Company Number: FR-SUN PHARMACEUTICAL INDUSTRIES LTD-2021RR-307217

PATIENT
  Age: 40 Year
  Sex: Male

DRUGS (5)
  1. CLOBETASOL [Suspect]
     Active Substance: CLOBETASOL
     Indication: MYOPATHY
     Dosage: 0.05%
     Route: 065
  2. ATORVASTATIN [Suspect]
     Active Substance: ATORVASTATIN
     Indication: MYOPATHY
     Dosage: UNK
     Route: 065
  3. METHYLPREDNISOLONE. [Suspect]
     Active Substance: METHYLPREDNISOLONE
     Dosage: 1 MILLIGRAM/KILOGRAM, DAILY
     Route: 040
  4. HYDROXYCHLOROQUINE [Suspect]
     Active Substance: HYDROXYCHLOROQUINE
     Indication: MYOPATHY
     Dosage: 200 MILLIGRAM, BID
     Route: 065
  5. METHYLPREDNISOLONE. [Suspect]
     Active Substance: METHYLPREDNISOLONE
     Indication: MYOPATHY
     Dosage: 250 MILLIGRAM, DAILY
     Route: 040

REACTIONS (5)
  - Drug ineffective [Unknown]
  - Hepatic cytolysis [Unknown]
  - Disease recurrence [Unknown]
  - Jessner^s lymphocytic infiltration [Unknown]
  - Immune-mediated myositis [Recovering/Resolving]
